FAERS Safety Report 22037216 (Version 2)
Quarter: 2024Q1

REPORT INFORMATION
  Report Type: Spontaneous
  Country: US (occurrence: US)
  Receive Date: 20230226
  Receipt Date: 20240207
  Transmission Date: 20240409
  Serious: No
  Sender: FDA-Public Use
  Company Number: US-ELI_LILLY_AND_COMPANY-US202302011819

PATIENT
  Age: 29 Year
  Sex: Female

DRUGS (4)
  1. MOUNJARO [Suspect]
     Active Substance: TIRZEPATIDE
     Indication: Weight decreased
     Dosage: UNK UNK, UNKNOWN
     Route: 065
     Dates: start: 20220921
  2. MOUNJARO [Suspect]
     Active Substance: TIRZEPATIDE
     Indication: Weight decreased
     Dosage: UNK UNK, UNKNOWN
     Route: 065
     Dates: start: 20220921
  3. MOUNJARO [Suspect]
     Active Substance: TIRZEPATIDE
     Indication: Weight decreased
     Dosage: 12.5 MG, UNKNOWN
     Route: 058
  4. MOUNJARO [Suspect]
     Active Substance: TIRZEPATIDE
     Indication: Weight decreased
     Dosage: 12.5 MG, UNKNOWN
     Route: 058

REACTIONS (4)
  - Incorrect dose administered [Unknown]
  - Extra dose administered [Unknown]
  - Off label use [Unknown]
  - Injection site erythema [Unknown]

NARRATIVE: CASE EVENT DATE: 20230219
